FAERS Safety Report 12522621 (Version 4)
Quarter: 2018Q2

REPORT INFORMATION
  Report Type: Report from Study
  Country: BR (occurrence: BR)
  Receive Date: 20160701
  Receipt Date: 20180606
  Transmission Date: 20180711
  Serious: Yes (Hospitalization, Other)
  Sender: FDA-Public Use
  Company Number: PHHY2016BR089770

PATIENT
  Age: 73 Year
  Sex: Female
  Weight: 79.5 kg

DRUGS (2)
  1. ACLASTA [Suspect]
     Active Substance: ZOLEDRONIC ACID
     Indication: OSTEOPOROSIS
     Dosage: 1 DF (5MG/100ML), Q12MO
     Route: 042
     Dates: start: 201604, end: 201604
  2. CALCIUM [Concomitant]
     Active Substance: CALCIUM
     Indication: PRODUCT USED FOR UNKNOWN INDICATION
     Route: 065

REACTIONS (23)
  - Pain [Not Recovered/Not Resolved]
  - Malaise [Unknown]
  - Nasopharyngitis [Unknown]
  - Infarction [Unknown]
  - Weight decreased [Unknown]
  - Grip strength decreased [Unknown]
  - Vomiting [Unknown]
  - Back pain [Unknown]
  - Spinal cord compression [Unknown]
  - Cardiac disorder [Unknown]
  - Procedural haemorrhage [Recovering/Resolving]
  - Memory impairment [Unknown]
  - Vertebral artery stenosis [Unknown]
  - Hypoaesthesia [Unknown]
  - Abdominal discomfort [Unknown]
  - Chills [Unknown]
  - Speech disorder [Unknown]
  - Hypersensitivity [Unknown]
  - Arthralgia [Unknown]
  - Neck pain [Unknown]
  - Hypokinesia [Not Recovered/Not Resolved]
  - Pain in extremity [Unknown]
  - Hypoacusis [Unknown]

NARRATIVE: CASE EVENT DATE: 201607
